FAERS Safety Report 7805596-5 (Version None)
Quarter: 2011Q4

REPORT INFORMATION
  Report Type: 
  Country: None (occurrence: None)
  Receive Date: 20111010
  Receipt Date: 20110929
  Transmission Date: 20120403
  Serious: Yes (Hospitalization)
  Sender: FDA-Public Use
  Company Number: US-ASTRAZENECA-2011SE58952

PATIENT
  Age: 64 Year
  Sex: Female
  Weight: 74.8 kg

DRUGS (4)
  1. SEROQUEL [Suspect]
     Indication: BIPOLAR DISORDER
     Route: 048
  2. ATIVAN [Concomitant]
  3. TRAZODONE HYDROCHLORIDE [Concomitant]
     Dosage: AT NIGHT
  4. SEROQUEL [Suspect]
     Route: 048

REACTIONS (1)
  - MENTAL DISORDER [None]
